FAERS Safety Report 6516347-9 (Version None)
Quarter: 2009Q4

REPORT INFORMATION
  Report Type: 
  Country: None (occurrence: None)
  Receive Date: 20091223
  Receipt Date: 20091221
  Transmission Date: 20100525
  Serious: Yes (Other)
  Sender: FDA-Public Use
  Company Number: A0832511A

PATIENT
  Age: 39 Year
  Sex: Female
  Weight: 68.2 kg

DRUGS (2)
  1. TREXIMET [Suspect]
     Indication: MIGRAINE
     Dosage: 1TAB SINGLE DOSE
     Route: 048
  2. UNKNOWN MEDICATION [Concomitant]

REACTIONS (6)
  - CONDITION AGGRAVATED [None]
  - MUSCLE TIGHTNESS [None]
  - MUSCULAR DYSTROPHY [None]
  - MUSCULAR WEAKNESS [None]
  - MUSCULOSKELETAL STIFFNESS [None]
  - SKIN TIGHTNESS [None]
